FAERS Safety Report 9022632 (Version 3)
Quarter: 2013Q3

REPORT INFORMATION
  Report Type: Spontaneous
  Country: NO (occurrence: NO)
  Receive Date: 20130120
  Receipt Date: 20130717
  Transmission Date: 20140515
  Serious: Yes (Life-Threatening, Hospitalization, Other)
  Sender: FDA-Public Use
  Company Number: NO-AMGEN-NORSP2013003646

PATIENT
  Age: 33 Year
  Sex: Male

DRUGS (1)
  1. ENBREL [Suspect]
     Indication: ANKYLOSING SPONDYLITIS
     Dosage: 50 MG, WEEKLY
     Route: 058
     Dates: start: 20111209, end: 20120123

REACTIONS (8)
  - Tachycardia [Unknown]
  - Respiratory arrest [Unknown]
  - Atrial fibrillation [Unknown]
  - Ventricular fibrillation [Unknown]
  - Coronary artery disease [Unknown]
  - Insomnia [Unknown]
  - Pruritus [Unknown]
  - Cardiac failure acute [Recovered/Resolved with Sequelae]
